FAERS Safety Report 26034680 (Version 1)
Quarter: 2025Q4

REPORT INFORMATION
  Report Type: Spontaneous
  Country: JP (occurrence: JP)
  Receive Date: 20251112
  Receipt Date: 20251112
  Transmission Date: 20260118
  Serious: Yes (Other)
  Sender: ANI
  Company Number: JP-ANIPHARMA-2025-JP-000106

PATIENT
  Age: 78 Year
  Sex: Female

DRUGS (1)
  1. ANASTROZOLE [Suspect]
     Active Substance: ANASTROZOLE
     Indication: Breast cancer
     Route: 048

REACTIONS (16)
  - Hypothermia [Unknown]
  - Hypertension [Unknown]
  - Nausea [Unknown]
  - Hyperhidrosis [Unknown]
  - Weight decreased [Unknown]
  - Electrocardiogram QT prolonged [Unknown]
  - Aspartate aminotransferase increased [Unknown]
  - Blood lactate dehydrogenase increased [Unknown]
  - Blood creatine phosphokinase increased [Unknown]
  - Amylase increased [Unknown]
  - Low density lipoprotein decreased [Unknown]
  - Blood calcium decreased [Unknown]
  - Normochromic normocytic anaemia [Unknown]
  - Vitamin B12 decreased [Unknown]
  - Thyroid disorder [Unknown]
  - Monocyte count increased [Unknown]

NARRATIVE: CASE EVENT DATE: 20250711
